FAERS Safety Report 21992462 (Version 1)
Quarter: 2023Q1

REPORT INFORMATION
  Report Type: Spontaneous
  Country: DE (occurrence: DE)
  Receive Date: 20230215
  Receipt Date: 20230215
  Transmission Date: 20230418
  Serious: Yes (Hospitalization, Other)
  Sender: FDA-Public Use
  Company Number: DE-AMGEN-DEUSP2023026311

PATIENT
  Age: 70 Year
  Sex: Male

DRUGS (3)
  1. BEVACIZUMAB [Suspect]
     Active Substance: BEVACIZUMAB
     Indication: Diabetic retinal oedema
     Dosage: UNK
  2. AFLIBERCEPT [Concomitant]
     Active Substance: AFLIBERCEPT
     Indication: Diabetic retinal oedema
     Dosage: UNK
  3. DEXAMETHASONE [Concomitant]
     Active Substance: DEXAMETHASONE
     Indication: Diabetic retinal oedema
     Dosage: UNK

REACTIONS (8)
  - Hypopyon [Recovering/Resolving]
  - Visual impairment [Recovering/Resolving]
  - Asthenopia [Recovering/Resolving]
  - Conjunctival hyperaemia [Recovering/Resolving]
  - Corneal oedema [Recovering/Resolving]
  - Vitreous opacities [Recovering/Resolving]
  - Eye pain [Recovered/Resolved]
  - Off label use [Unknown]
